FAERS Safety Report 13138586 (Version 3)
Quarter: 2017Q4

REPORT INFORMATION
  Report Type: Report from Study
  Country: JP (occurrence: JP)
  Receive Date: 20170123
  Receipt Date: 20171225
  Transmission Date: 20180320
  Serious: Yes (Death, Other)
  Sender: FDA-Public Use
  Company Number: PHJP2017JP002316

PATIENT

DRUGS (1)
  1. ZYKADIA [Suspect]
     Active Substance: CERITINIB
     Indication: NON-SMALL CELL LUNG CANCER
     Dosage: 750 MG, QD
     Route: 048

REACTIONS (5)
  - Enterocolitis [Unknown]
  - Nausea [Unknown]
  - Non-small cell lung cancer [Fatal]
  - Malignant neoplasm progression [Fatal]
  - Diarrhoea [Unknown]
